FAERS Safety Report 4521243-2 (Version None)
Quarter: 2004Q4

REPORT INFORMATION
  Report Type: 
  Country: None (occurrence: None)
  Receive Date: 20041206
  Receipt Date: 20041118
  Transmission Date: 20050328
  Serious: Yes (Hospitalization, Other)
  Sender: FDA-Public Use
  Company Number: 2004-DE-05906GD

PATIENT
  Sex: 0

DRUGS (2)
  1. HYOSCINE HBR HYT [Suspect]
     Indication: BILIARY COLIC
     Dosage: 20 MG (29 MG ONCE), IM
     Route: 030
  2. DICLOFENAC (DICLOFENAC) [Suspect]
     Indication: BILIARY COLIC
     Dosage: 75 MG (75 MC, ONCE), IM
     Route: 030

REACTIONS (3)
  - CHOLECYSTITIS ACUTE [None]
  - CHOLELITHIASIS [None]
  - PAIN [None]
